FAERS Safety Report 10750183 (Version 1)
Quarter: 2015Q1

REPORT INFORMATION
  Report Type: Spontaneous
  Country: US (occurrence: US)
  Receive Date: 20150129
  Receipt Date: 20150129
  Transmission Date: 20150721
  Serious: Yes (Death, Other)
  Sender: FDA-Public Use
  Company Number: PHEH2015US001974

PATIENT
  Age: 62 Year
  Sex: Male

DRUGS (1)
  1. ZORTRESS [Suspect]
     Active Substance: EVEROLIMUS
     Indication: HEART TRANSPLANT
     Route: 048

REACTIONS (2)
  - Death [Fatal]
  - Heart transplant rejection [Unknown]

NARRATIVE: CASE EVENT DATE: 20150124
